FAERS Safety Report 7167863-0 (Version None)
Quarter: 2010Q4

REPORT INFORMATION
  Report Type: 
  Country: None (occurrence: None)
  Receive Date: 20101216
  Receipt Date: 20100119
  Transmission Date: 20110411
  Serious: No
  Sender: FDA-Public Use
  Company Number: US-TYCO HEALTHCARE/MALLINCKRODT-T201000340

PATIENT

DRUGS (14)
  1. OXYCODONE HCL [Suspect]
     Dosage: 1-2 Q 4-6 H
     Route: 048
     Dates: start: 20090101
  2. OXYCODONE HCL AND ACETAMINOPHEN [Suspect]
     Indication: PAIN
     Dosage: 1 TO 2 Q 4-6 HRS
     Route: 048
  3. HUMALOG [Concomitant]
     Indication: DIABETES MELLITUS
     Dosage: 30 UNITS, TID AFTER MEALS
  4. LANTUS [Concomitant]
     Dosage: 90 UNITS, QD
  5. PREDNISONE [Concomitant]
     Indication: ARTHRITIS
     Dosage: UNK
  6. GABAPENTIN [Concomitant]
     Indication: NEUROPATHY PERIPHERAL
     Dosage: 300 MG, QID
     Route: 048
  7. SIMVASTIN-MEPHA [Concomitant]
     Dosage: 20 MG, QD
     Route: 048
  8. SULFASALAZINE [Concomitant]
     Indication: RHEUMATOID ARTHRITIS
     Dosage: 1 TABLET  TID
     Route: 048
  9. AMITRIPTYLINE [Concomitant]
     Indication: INSOMNIA
     Dosage: 2 TABLETS Q PM
     Route: 048
  10. VENAFLEXINE [Concomitant]
     Indication: DEPRESSION
     Dosage: 1 TABLET, QD
     Route: 048
  11. FUROSEMIDE [Concomitant]
     Dosage: 1 TABLET, QD
     Route: 048
  12. VITAMINS                           /90003601/ [Concomitant]
     Dosage: UNK, QD
     Route: 048
  13. CORTICOSTEROIDS [Concomitant]
     Dosage: UNK
     Route: 048
  14. HYDROXYZINE HCL [Concomitant]
     Indication: ANXIETY
     Dosage: UNK
     Route: 048

REACTIONS (1)
  - DRUG SCREEN FALSE POSITIVE [None]
